FAERS Safety Report 14853751 (Version 1)
Quarter: 2018Q2

REPORT INFORMATION
  Report Type: Report from Study
  Country: FR (occurrence: FR)
  Receive Date: 20180507
  Receipt Date: 20180507
  Transmission Date: 20180711
  Serious: Yes (Hospitalization)
  Sender: FDA-Public Use
  Company Number: FR-GUERBET-FR-20180254

PATIENT
  Age: 46 Year
  Sex: Female

DRUGS (1)
  1. DOTAREM [Suspect]
     Active Substance: GADOTERATE MEGLUMINE
     Indication: NUCLEAR MAGNETIC RESONANCE IMAGING
     Route: 042
     Dates: start: 20180427, end: 20180427

REACTIONS (5)
  - Pruritus [Unknown]
  - Type I hypersensitivity [Unknown]
  - Erythema [Unknown]
  - Contraindicated product administered [Unknown]
  - Urticaria [Unknown]

NARRATIVE: CASE EVENT DATE: 20180427
